FAERS Safety Report 6289200-6 (Version None)
Quarter: 2009Q3

REPORT INFORMATION
  Report Type: 
  Country: None (occurrence: None)
  Receive Date: 20090728
  Receipt Date: 20090720
  Transmission Date: 20100115
  Serious: Yes (Other)
  Sender: FDA-Public Use
  Company Number: OSCN-NO-0804S-0226

PATIENT
  Age: 49 Year
  Sex: Female

DRUGS (3)
  1. OMNISCAN [Suspect]
     Indication: DRUG USE FOR UNKNOWN INDICATION
     Dosage: 10 ML, SINGLE DOSE, I.V., 10 ML, SINGLE DOSE, I.V.
     Route: 042
     Dates: start: 20050103, end: 20050103
  2. OMNISCAN [Suspect]
     Indication: DRUG USE FOR UNKNOWN INDICATION
     Dosage: 10 ML, SINGLE DOSE, I.V., 10 ML, SINGLE DOSE, I.V.
     Route: 042
     Dates: start: 20050224, end: 20050224
  3. MAGNEVIST [Concomitant]

REACTIONS (1)
  - NEPHROGENIC SYSTEMIC FIBROSIS [None]
